FAERS Safety Report 14540040 (Version 1)
Quarter: 2018Q1

REPORT INFORMATION
  Report Type: Spontaneous
  Country: US (occurrence: US)
  Receive Date: 20180215
  Receipt Date: 20180215
  Transmission Date: 20180509
  Serious: Yes (Other)
  Sender: FDA-Public Use
  Company Number: None

PATIENT
  Age: 29 Year
  Sex: Male
  Weight: 98.88 kg

DRUGS (1)
  1. BUPIVACAINE HCL/ DEXTROSE, 0.75%/8.25% % [Suspect]
     Active Substance: BUPIVACAINE\DEXTROSE
     Indication: SPINAL ANAESTHESIA
     Route: 037
     Dates: start: 20180205, end: 20180215

REACTIONS (2)
  - Drug ineffective [None]
  - Drug effect delayed [None]

NARRATIVE: CASE EVENT DATE: 20180215
